FAERS Safety Report 14185815 (Version 6)
Quarter: 2018Q1

REPORT INFORMATION
  Report Type: Report from Study
  Country: CA (occurrence: CA)
  Receive Date: 20171114
  Receipt Date: 20180315
  Transmission Date: 20180508
  Serious: Yes (Hospitalization, Other)
  Sender: FDA-Public Use
  Company Number: CA-GLAXOSMITHKLINE-CA2017GSK173567

PATIENT
  Sex: Male

DRUGS (4)
  1. MEPOLIZUMAB [Suspect]
     Active Substance: MEPOLIZUMAB
     Dosage: 100 MG, Z (ONCE MONTHLY)
     Route: 042
  2. MEPOLIZUMAB [Suspect]
     Active Substance: MEPOLIZUMAB
     Dosage: 100 MG, Z (ONCE MONTHLY)
     Route: 042
  3. MEPOLIZUMAB [Suspect]
     Active Substance: MEPOLIZUMAB
     Indication: ASTHMA
     Dosage: 100 MG, Z (ONCE MONTHLY)
     Route: 042
     Dates: start: 20170913
  4. MEPOLIZUMAB [Suspect]
     Active Substance: MEPOLIZUMAB
     Dosage: 100 MG, Z (ONCE MONTHLY)
     Route: 042

REACTIONS (9)
  - Peripheral swelling [Unknown]
  - Rhinorrhoea [Unknown]
  - Lung disorder [Unknown]
  - Cellulitis [Unknown]
  - Drug ineffective [Unknown]
  - Cough [Unknown]
  - Asthma [Unknown]
  - Headache [Recovering/Resolving]
  - Pain in extremity [Unknown]
